FAERS Safety Report 8469713-9 (Version None)
Quarter: 2012Q2

REPORT INFORMATION
  Report Type: 
  Country: None (occurrence: None)
  Receive Date: 20120626
  Receipt Date: 20120620
  Transmission Date: 20120825
  Serious: No
  Sender: FDA-Public Use
  Company Number: US-PFIZER INC-2012149711

PATIENT
  Sex: Female

DRUGS (2)
  1. EFFEXOR XR [Suspect]
     Dosage: UNK
  2. LIPITOR [Concomitant]
     Dosage: UNK

REACTIONS (3)
  - CRYING [None]
  - ANGER [None]
  - LOGORRHOEA [None]
